FAERS Safety Report 4465056-9 (Version None)
Quarter: 2004Q3

REPORT INFORMATION
  Report Type: 
  Country: None (occurrence: None)
  Receive Date: 20040928
  Receipt Date: 20040928
  Transmission Date: 20050211
  Serious: Yes (Life-Threatening, Hospitalization, Disabling)
  Sender: FDA-Public Use
  Company Number: None

PATIENT
  Age: 45 Year
  Sex: Female
  Weight: 49.8957 kg

DRUGS (8)
  1. YASMIN [Suspect]
     Indication: MENOPAUSE
     Dosage: DAILY
     Dates: start: 20020505, end: 20040601
  2. SYNTHYROID [Concomitant]
  3. MULTI-VITAMIN [Concomitant]
  4. VITAMIN C [Concomitant]
  5. VITAMIN E [Concomitant]
  6. VITAMIN B6 [Concomitant]
  7. MAGNESIUM [Concomitant]
  8. WELLBUTRIN [Concomitant]

REACTIONS (1)
  - THROMBOSIS [None]
